FAERS Safety Report 9664922 (Version 1)
Quarter: 2013Q4

REPORT INFORMATION
  Report Type: Spontaneous
  Country: JP (occurrence: JP)
  Receive Date: 20131101
  Receipt Date: 20131101
  Transmission Date: 20140711
  Serious: Yes (Other)
  Sender: FDA-Public Use
  Company Number: JP-PFIZER INC-2013312957

PATIENT
  Age: 80 Year
  Sex: Female

DRUGS (4)
  1. LYRICA [Suspect]
     Indication: HERPES ZOSTER
     Dosage: UNK ONCE DAILY
     Route: 048
     Dates: start: 201310
  2. LOXONIN [Concomitant]
     Indication: PAIN
     Dosage: UNSPECIFIED DOSE AS NEEDED
  3. MOHRUS [Concomitant]
     Indication: PAIN
     Dosage: UNSPECIFIED DOSE AS NEEDED
  4. VITAMIN B12 [Concomitant]
     Dosage: UNK

REACTIONS (4)
  - Erysipelas [Unknown]
  - Local swelling [Unknown]
  - Pain [Unknown]
  - Ingrowing nail [Unknown]
